FAERS Safety Report 9249471 (Version 4)
Quarter: 2013Q2

REPORT INFORMATION
  Report Type: Report from Study
  Country: GB (occurrence: GB)
  Receive Date: 20130423
  Receipt Date: 20130528
  Transmission Date: 20140414
  Serious: Yes (Hospitalization)
  Sender: FDA-Public Use
  Company Number: GB-NAPPMUNDI-GBR-2013-0013735

PATIENT
  Age: 72 Year
  Sex: Female

DRUGS (7)
  1. MORPHINE SULFATE IR TABLET [Suspect]
     Indication: CANCER PAIN
     Dosage: 5 MG, SINGLE
     Route: 048
     Dates: start: 20130411, end: 20130412
  2. MORPHINE SULFATE IR TABLET [Suspect]
     Dosage: 20 MG, UNK
     Route: 048
     Dates: start: 20130410
  3. MORPHINE SULFATE IR TABLET [Suspect]
     Dosage: 10 MG, UNK
     Route: 048
     Dates: start: 20130409
  4. ORAMORPH [Suspect]
     Indication: CANCER PAIN
     Dosage: 10 MG, (8 MG REGULAR ORAMORPH+2 MG BREAKTHROUGH ORAMORPH)
     Dates: start: 20130421, end: 20130423
  5. ORAMORPH [Suspect]
     Dosage: 9 MG, (8 MG REGULAR ORAMORPH+1 MG BREAKTHROUGH ORAMORPH)
     Route: 048
     Dates: start: 20130420, end: 20130420
  6. ORAMORPH [Suspect]
     Dosage: 4 MG, UNK
     Route: 048
     Dates: start: 20130417, end: 20130419
  7. ORAMORPH [Suspect]
     Dosage: 1 MG, SINGLE
     Route: 048
     Dates: start: 20130412, end: 20130412

REACTIONS (6)
  - Blood calcium increased [Recovering/Resolving]
  - Urinary tract infection [Recovering/Resolving]
  - Muscular weakness [Recovering/Resolving]
  - Somnolence [Recovering/Resolving]
  - Ataxia [Recovering/Resolving]
  - Vomiting [Recovering/Resolving]
